FAERS Safety Report 11155581 (Version 1)
Quarter: 2015Q2

REPORT INFORMATION
  Report Type: Report from Study
  Country: US (occurrence: US)
  Receive Date: 20150602
  Receipt Date: 20150602
  Transmission Date: 20150821
  Serious: Yes (Hospitalization)
  Sender: FDA-Public Use
  Company Number: PHEH2015US010182

PATIENT
  Age: 14 Year
  Sex: Female

DRUGS (1)
  1. EXJADE [Suspect]
     Active Substance: DEFERASIROX
     Indication: SICKLE CELL ANAEMIA
     Dosage: 2250 MG (500MG AND 250 MG TABLETS), QD (DAILY)
     Route: 048

REACTIONS (3)
  - Oral candidiasis [Unknown]
  - Feeding disorder [Unknown]
  - Tongue discolouration [Unknown]

NARRATIVE: CASE EVENT DATE: 20150527
